FAERS Safety Report 6088073-4 (Version None)
Quarter: 2009Q1

REPORT INFORMATION
  Report Type: 
  Country: None (occurrence: None)
  Receive Date: 20090218
  Receipt Date: 20090204
  Transmission Date: 20090719
  Serious: Yes (Other)
  Sender: FDA-Public Use
  Company Number: 2008S1005720

PATIENT
  Age: 53 Year
  Sex: Male

DRUGS (14)
  1. MIRTAZAPINE [Suspect]
     Indication: DEPRESSION
     Dosage: 15 MG; ORAL; ORAL; 30 MG; ORAL; ORAL; DAILY
     Route: 048
     Dates: start: 20070201, end: 20070529
  2. MIRTAZAPINE [Suspect]
     Indication: DEPRESSION
     Dosage: 15 MG; ORAL; ORAL; 30 MG; ORAL; ORAL; DAILY
     Route: 048
     Dates: start: 20070201, end: 20070608
  3. MIRTAZAPINE [Suspect]
     Indication: DEPRESSION
     Dosage: 15 MG; ORAL; ORAL; 30 MG; ORAL; ORAL; DAILY
     Route: 048
     Dates: start: 20070529, end: 20070608
  4. MIRTAZAPINE [Suspect]
     Indication: DEPRESSION
     Dosage: 15 MG; ORAL; ORAL; 30 MG; ORAL; ORAL; DAILY
     Route: 048
     Dates: start: 20070906, end: 20070914
  5. MIRTAZAPINE [Suspect]
     Indication: DEPRESSION
     Dosage: 15 MG; ORAL; ORAL; 30 MG; ORAL; ORAL; DAILY
     Route: 048
     Dates: start: 20070914
  6. DOTHIEPIN HYDROCHLORIDE [Concomitant]
  7. ESCITALOPRAM [Concomitant]
  8. ACETAMINOPHEN [Concomitant]
  9. ASPIRIN [Concomitant]
  10. ATIVAN [Concomitant]
  11. DOTHIEPIN [Concomitant]
  12. MAALOX [Concomitant]
  13. NICORETTE [Concomitant]
  14. PARACETAMOL [Concomitant]

REACTIONS (7)
  - ABNORMAL DREAMS [None]
  - AGGRESSION [None]
  - ALCOHOL INTERACTION [None]
  - DEPRESSION [None]
  - HOMICIDE [None]
  - JOINT SWELLING [None]
  - OEDEMA PERIPHERAL [None]
